FAERS Safety Report 4955824-9 (Version None)
Quarter: 2006Q1

REPORT INFORMATION
  Report Type: 
  Country: None (occurrence: None)
  Receive Date: 20060327
  Receipt Date: 20060327
  Transmission Date: 20060701
  Serious: No
  Sender: FDA-Public Use
  Company Number: None

PATIENT
  Sex: Female
  Weight: 65.7716 kg

DRUGS (2)
  1. LEXAPRO [Suspect]
     Indication: ANXIETY
     Dosage: 10 MG 1 EACH DAY
  2. LEXAPRO [Suspect]
     Indication: DEPRESSION
     Dosage: 10 MG 1 EACH DAY

REACTIONS (2)
  - ALOPECIA [None]
  - HYPOTRICHOSIS [None]
